FAERS Safety Report 4559395-0 (Version None)
Quarter: 2005Q1

REPORT INFORMATION
  Report Type: 
  Country: None (occurrence: None)
  Receive Date: 20050120
  Receipt Date: 20050120
  Transmission Date: 20050727
  Serious: No
  Sender: FDA-Public Use
  Company Number: None

PATIENT
  Age: 35 Year
  Sex: Male

DRUGS (7)
  1. SIMVASTATIN [Suspect]
     Dosage: 40 MG Q HS [}1 YR}
  2. METOPROLOL TARTRATE [Concomitant]
  3. REMERON [Concomitant]
  4. BUSPAR [Concomitant]
  5. CLONAZEPAM [Concomitant]
  6. FOSINOPRIL [Concomitant]
  7. OMEPRAZOLE [Concomitant]

REACTIONS (2)
  - DYSURIA [None]
  - RHABDOMYOLYSIS [None]
